FAERS Safety Report 4662108-5 (Version None)
Quarter: 2005Q2

REPORT INFORMATION
  Report Type: 
  Country: None (occurrence: None)
  Receive Date: 20050512
  Receipt Date: 20050425
  Transmission Date: 20051028
  Serious: Yes (Other)
  Sender: FDA-Public Use
  Company Number: USA050496529

PATIENT
  Age: 69 Year
  Sex: Female

DRUGS (2)
  1. EVISTA [Suspect]
     Dates: start: 20010101
  2. TAMOXIFEN [Concomitant]

REACTIONS (2)
  - JOINT SWELLING [None]
  - UTERINE CANCER [None]
